FAERS Safety Report 8150540-7 (Version None)
Quarter: 2012Q1

REPORT INFORMATION
  Report Type: 
  Country: None (occurrence: None)
  Receive Date: 20120220
  Receipt Date: 20120210
  Transmission Date: 20120608
  Serious: Yes (Hospitalization)
  Sender: FDA-Public Use
  Company Number: JP-ASTELLAS-2011JP009462

PATIENT
  Age: 51 Year
  Sex: Female

DRUGS (13)
  1. PROGRAF [Suspect]
     Dosage: 3 MG, UNKNOWN/D
     Route: 048
     Dates: start: 20110223
  2. ZOLPIDEM [Concomitant]
     Dosage: 5 MG, UNKNOWN/D
     Route: 048
  3. ANPLAG [Concomitant]
     Dosage: 300 MG, UNKNOWN/D
     Route: 048
  4. MEILAX [Concomitant]
     Dosage: 1 MG, UNKNOWN/D
     Route: 048
  5. METHYCOBAL [Concomitant]
     Dosage: 1500 UG, UNKNOWN/D
     Route: 048
  6. DORAL [Concomitant]
     Dosage: 15 MG, UNKNOWN/D
     Route: 048
  7. PREDNISOLONE [Concomitant]
     Dosage: 10 MG, UNKNOWN/D
     Route: 048
  8. RABEPRAZOLE SODIUM [Concomitant]
     Dosage: 10 MG, UNKNOWN/D
     Route: 048
  9. PROGRAF [Suspect]
     Dosage: 2 MG, UNKNOWN/D
     Route: 048
  10. MUCOSTA [Concomitant]
     Dosage: 300 MG, UNKNOWN/D
     Route: 048
  11. KERLONE [Concomitant]
     Dosage: 10 MG, UNKNOWN/D
     Route: 048
  12. LOXONIN [Concomitant]
     Dosage: 180 MG, UNKNOWN/D
     Route: 048
  13. SENNOSIDE [Concomitant]
     Dosage: 24 MG, UNKNOWN/D
     Route: 048

REACTIONS (1)
  - RECTAL ULCER HAEMORRHAGE [None]
